FAERS Safety Report 9520380 (Version 2)
Quarter: 2014Q1

REPORT INFORMATION
  Report Type: Spontaneous
  Country: US (occurrence: US)
  Receive Date: 20130912
  Receipt Date: 20140130
  Transmission Date: 20141002
  Serious: Yes (Death, Other)
  Sender: FDA-Public Use
  Company Number: US-GILEAD-2013-0083232

PATIENT
  Sex: Male
  Weight: 71.2 kg

DRUGS (3)
  1. LETAIRIS [Suspect]
     Indication: PULMONARY HYPERTENSION
     Dosage: 5 MG, UNK
     Route: 048
     Dates: start: 20130822, end: 201309
  2. LETAIRIS [Suspect]
     Indication: SARCOIDOSIS
  3. ADCIRCA [Concomitant]

REACTIONS (2)
  - Death [Fatal]
  - Pulmonary fibrosis [Unknown]
